FAERS Safety Report 19306111 (Version 3)
Quarter: 2022Q2

REPORT INFORMATION
  Report Type: Report from Study
  Country: US (occurrence: US)
  Receive Date: 20210525
  Receipt Date: 20220509
  Transmission Date: 20220721
  Serious: Yes (Death)
  Sender: FDA-Public Use
  Company Number: US-NOVARTISTESTPH-NVSC2021US116117

PATIENT
  Age: 50 Year
  Sex: Female

DRUGS (6)
  1. AFINITOR [Suspect]
     Active Substance: EVEROLIMUS
     Indication: Breast cancer female
     Dosage: 5 MG, QD (2 TABS BY MOUTH DAILY)
     Route: 048
  2. AFINITOR [Suspect]
     Active Substance: EVEROLIMUS
     Indication: Bone cancer
  3. AFINITOR [Suspect]
     Active Substance: EVEROLIMUS
     Indication: Hepatic cancer
  4. AFINITOR [Suspect]
     Active Substance: EVEROLIMUS
     Indication: Cholangiocarcinoma
  5. AFINITOR [Suspect]
     Active Substance: EVEROLIMUS
     Indication: Lymphoma
  6. AFINITOR [Suspect]
     Active Substance: EVEROLIMUS
     Indication: Metastases to central nervous system

REACTIONS (3)
  - Death [Fatal]
  - Dysarthria [Unknown]
  - Aphthous ulcer [Unknown]

NARRATIVE: CASE EVENT DATE: 20210722
